FAERS Safety Report 21443551 (Version 1)
Quarter: 2022Q4

REPORT INFORMATION
  Report Type: Spontaneous
  Country: HR (occurrence: None)
  Receive Date: 20221012
  Receipt Date: 20221012
  Transmission Date: 20230113
  Serious: Yes (Other)
  Sender: FDA-Public Use
  Company Number: 2022A336571

PATIENT
  Sex: Female

DRUGS (7)
  1. QUETIAPINE [Suspect]
     Active Substance: QUETIAPINE
     Dosage: UNK
     Route: 048
     Dates: start: 20220811, end: 20220811
  2. CLONAZEPAM [Suspect]
     Active Substance: CLONAZEPAM
     Dosage: UNK
     Route: 048
     Dates: start: 20220811, end: 20220811
  3. TIANEPTINE SODIUM [Suspect]
     Active Substance: TIANEPTINE SODIUM
     Dosage: UNK
     Route: 048
     Dates: start: 20220811, end: 20220811
  4. HALOPERIDOL [Suspect]
     Active Substance: HALOPERIDOL
     Dosage: UNK
     Route: 048
     Dates: start: 20220811, end: 20220811
  5. FLUOXETINE HYDROCHLORIDE [Suspect]
     Active Substance: FLUOXETINE HYDROCHLORIDE
     Dosage: UNK
     Route: 048
     Dates: start: 20220811, end: 20220811
  6. ARIPIPRAZOLE [Suspect]
     Active Substance: ARIPIPRAZOLE
     Dosage: UNK
     Route: 048
     Dates: start: 20220811, end: 20220811
  7. BIPERIDEN [Suspect]
     Active Substance: BIPERIDEN
     Dosage: UNK
     Route: 048
     Dates: start: 20220811, end: 20220811

REACTIONS (3)
  - Intentional overdose [Unknown]
  - Drug abuse [Unknown]
  - Somnolence [Unknown]

NARRATIVE: CASE EVENT DATE: 20220811
